FAERS Safety Report 21011335 (Version 1)
Quarter: 2022Q2

REPORT INFORMATION
  Report Type: Spontaneous
  Country: US (occurrence: US)
  Receive Date: 20220627
  Receipt Date: 20220627
  Transmission Date: 20220721
  Serious: Yes (Hospitalization, Other)
  Sender: FDA-Public Use
  Company Number: US-BRISTOL-MYERS SQUIBB COMPANY-2022-060135

PATIENT
  Age: 76 Year
  Sex: Female
  Weight: 82.100 kg

DRUGS (1)
  1. REVLIMID [Suspect]
     Active Substance: LENALIDOMIDE
     Indication: Plasma cell myeloma
     Dosage: FREQUENCY:  3W, 1W OFF
     Route: 048

REACTIONS (2)
  - Cerebrovascular accident [Unknown]
  - Dizziness [Unknown]
